FAERS Safety Report 6701421-4 (Version None)
Quarter: 2010Q2

REPORT INFORMATION
  Report Type: 
  Country: None (occurrence: None)
  Receive Date: 20100429
  Receipt Date: 20100420
  Transmission Date: 20101027
  Serious: Yes (Other)
  Sender: FDA-Public Use
  Company Number: ES-RANBAXY-2010RR-32535

PATIENT
  Age: 12 Year
  Sex: Male

DRUGS (2)
  1. TOPIRAMATE [Suspect]
     Indication: MIGRAINE WITH AURA
     Dosage: 25 MG, BID
  2. FLUNARIZINE [Concomitant]
     Dosage: 5 MG, QD

REACTIONS (1)
  - MIGRAINE [None]
